FAERS Safety Report 7231570-6 (Version None)
Quarter: 2011Q1

REPORT INFORMATION
  Report Type: 
  Country: None (occurrence: None)
  Receive Date: 20110118
  Receipt Date: 20110107
  Transmission Date: 20110831
  Serious: No
  Sender: FDA-Public Use
  Company Number: MX-ASTRAZENECA-2011SE01486

PATIENT
  Age: 28 Year
  Sex: Male

DRUGS (5)
  1. BIPERIDEN HYDROCHLORIDE TAB [Concomitant]
     Indication: TREMOR
     Route: 048
  2. SEROQUEL [Suspect]
     Indication: SCHIZOPHRENIA
     Route: 048
     Dates: end: 20110107
  3. SEROQUEL [Suspect]
     Route: 048
     Dates: start: 20101201
  4. BEZAFIBRATE [Concomitant]
     Indication: HYPERCHOLESTEROLAEMIA
  5. BEZAFIBRATE [Concomitant]
     Indication: HYPERTRIGLYCERIDAEMIA

REACTIONS (1)
  - THROMBOCYTOPENIA [None]
